FAERS Safety Report 21881175 (Version 2)
Quarter: 2023Q1

REPORT INFORMATION
  Report Type: Spontaneous
  Country: JP (occurrence: JP)
  Receive Date: 20230118
  Receipt Date: 20230302
  Transmission Date: 20230417
  Serious: Yes (Death)
  Sender: FDA-Public Use
  Company Number: JP-ABBVIE-4216475

PATIENT
  Age: 60 Year
  Sex: Male

DRUGS (1)
  1. VENCLEXTA [Suspect]
     Active Substance: VENETOCLAX
     Indication: Acute myeloid leukaemia
     Dosage: 100 MILLIGRAM
     Route: 048
     Dates: start: 20221101

REACTIONS (2)
  - Acute myeloid leukaemia [Fatal]
  - Nausea [Unknown]

NARRATIVE: CASE EVENT DATE: 20221101
